FAERS Safety Report 16355590 (Version 1)
Quarter: 2019Q2

REPORT INFORMATION
  Report Type: Spontaneous
  Country: US (occurrence: US)
  Receive Date: 20190525
  Receipt Date: 20190525
  Transmission Date: 20190711
  Serious: Yes (Other)
  Sender: FDA-Public Use
  Company Number: US-TAKEDA-2018TUS031516

PATIENT

DRUGS (68)
  1. NEXIUM [Suspect]
     Active Substance: ESOMEPRAZOLE MAGNESIUM
     Indication: PRODUCT USED FOR UNKNOWN INDICATION
     Dosage: UNK
     Route: 048
     Dates: start: 2007, end: 2018
  2. ATENOLOL. [Concomitant]
     Active Substance: ATENOLOL
     Indication: HYPERTENSION
     Dosage: UNK
     Dates: start: 2006, end: 2015
  3. AZITHROMYCIN ANHYDROUS. [Concomitant]
     Active Substance: AZITHROMYCIN ANHYDROUS
     Indication: INFECTION
     Dosage: UNK
     Dates: start: 2014
  4. CLONIDINE. [Concomitant]
     Active Substance: CLONIDINE
     Indication: HYPERTENSION
     Dosage: UNK
     Dates: start: 2013, end: 2014
  5. ERYTHROMYCIN                       /00020902/ [Concomitant]
     Active Substance: ERYTHROMYCIN
  6. PEPCID                             /00305201/ [Concomitant]
     Active Substance: ALUMINUM HYDROXIDE\MAGNESIUM CARBONATE
  7. ZANTAC [Concomitant]
     Active Substance: RANITIDINE HYDROCHLORIDE
  8. LANSOPRAZOLE. [Suspect]
     Active Substance: LANSOPRAZOLE
     Indication: PRODUCT USED FOR UNKNOWN INDICATION
     Dosage: UNK
     Route: 048
  9. LEVOCETIRIZINE [Concomitant]
     Active Substance: LEVOCETIRIZINE
  10. LEVOFLOXACIN. [Concomitant]
     Active Substance: LEVOFLOXACIN
  11. MONTELUKAST SODIUM. [Concomitant]
     Active Substance: MONTELUKAST SODIUM
  12. SENNA                              /00142201/ [Concomitant]
     Active Substance: SENNA LEAF
  13. BENZONATATE. [Concomitant]
     Active Substance: BENZONATATE
     Indication: COUGH
     Dosage: UNK
     Dates: start: 2016
  14. FLUTICASONE. [Concomitant]
     Active Substance: FLUTICASONE
  15. GABAPENTIN. [Concomitant]
     Active Substance: GABAPENTIN
  16. LOSARTAN. [Concomitant]
     Active Substance: LOSARTAN
  17. NAPROXEN. [Concomitant]
     Active Substance: NAPROXEN
  18. PERMETHRIN. [Concomitant]
     Active Substance: PERMETHRIN
  19. TIROSINT [Concomitant]
     Active Substance: LEVOTHYROXINE SODIUM
  20. TRUEPLUS GLUCOSE [Concomitant]
  21. IBUPROFEN. [Concomitant]
     Active Substance: IBUPROFEN
  22. PROTONIX [Suspect]
     Active Substance: PANTOPRAZOLE SODIUM
     Indication: PRODUCT USED FOR UNKNOWN INDICATION
     Dosage: UNK
     Route: 048
     Dates: start: 2007, end: 2018
  23. PREDNISONE. [Concomitant]
     Active Substance: PREDNISONE
  24. PROPRANOLOL [Concomitant]
     Active Substance: PROPRANOLOL HYDROCHLORIDE
  25. SEREVENT DISKUS [Concomitant]
     Active Substance: SALMETEROL XINAFOATE
  26. VIRTUSSIN AC [Concomitant]
     Active Substance: CODEINE PHOSPHATE\GUAIFENESIN
  27. BENADRYL [Concomitant]
     Active Substance: DIPHENHYDRAMINE HYDROCHLORIDE
  28. TUMS                               /00193601/ [Concomitant]
     Active Substance: CALCIUM CARBONATE\MAGNESIUM CARBONATE\MAGNESIUM TRISILICATE
  29. BENZTROPINE. [Concomitant]
     Active Substance: BENZTROPINE
     Indication: TREMOR
     Dosage: UNK
     Dates: start: 2007
  30. BETAMETHASONE. [Concomitant]
     Active Substance: BETAMETHASONE
     Indication: RASH
     Dosage: UNK
     Dates: start: 2015
  31. CEPHALEXIN                         /00145501/ [Concomitant]
     Active Substance: CEPHALEXIN
     Indication: INFECTION
     Dosage: UNK
     Dates: start: 2006
  32. CYTOMEL [Concomitant]
     Active Substance: LIOTHYRONINE SODIUM
     Indication: HYPOTHYROIDISM
     Dosage: UNK
  33. IPRATROPIUM [Concomitant]
     Active Substance: IPRATROPIUM
  34. MECLIZINE [Concomitant]
     Active Substance: MECLIZINE HYDROCHLORIDE
  35. NYSTATIN. [Concomitant]
     Active Substance: NYSTATIN
  36. SELENIUM SULFIDE. [Concomitant]
     Active Substance: SELENIUM SULFIDE
  37. ACETAMINOPHEN. [Concomitant]
     Active Substance: ACETAMINOPHEN
  38. PEPCID COMPLETE                    /00706001/ [Concomitant]
  39. ZANTAC 75 [Concomitant]
     Active Substance: RANITIDINE HYDROCHLORIDE
  40. PANTOPRAZOLE SODIUM. [Suspect]
     Active Substance: PANTOPRAZOLE SODIUM
     Indication: GASTROOESOPHAGEAL REFLUX DISEASE
     Dosage: UNK
     Route: 048
     Dates: start: 2010
  41. AMOXICILLIN. [Concomitant]
     Active Substance: AMOXICILLIN
     Indication: INFECTION
     Dosage: UNK
     Dates: start: 2013
  42. ATORVASTATIN [Concomitant]
     Active Substance: ATORVASTATIN
     Indication: HYPERLIPIDAEMIA
     Dosage: UNK
     Dates: start: 2014
  43. A-HYDROCORT [Concomitant]
     Active Substance: HYDROCORTISONE SODIUM SUCCINATE
  44. LISINOPRIL. [Concomitant]
     Active Substance: LISINOPRIL
  45. PRAVASTATIN. [Concomitant]
     Active Substance: PRAVASTATIN
  46. PROAIR HFA [Concomitant]
     Active Substance: ALBUTEROL SULFATE
  47. TUSSIONEX                          /00004701/ [Concomitant]
     Active Substance: BROMHEXINE
  48. TAGAMET HB [Concomitant]
     Active Substance: CIMETIDINE
  49. ALBUTEROL                          /00139501/ [Concomitant]
     Active Substance: ALBUTEROL
     Indication: CHRONIC OBSTRUCTIVE PULMONARY DISEASE
     Dosage: UNK
     Dates: start: 2007, end: 2014
  50. AMLODIPINE BESYLATE. [Concomitant]
     Active Substance: AMLODIPINE BESYLATE
     Indication: HYPERTENSION
     Dosage: UNK
     Dates: start: 2015, end: 2016
  51. AZELASTINE                         /00884002/ [Concomitant]
     Indication: HYPERSENSITIVITY
     Dosage: UNK
     Dates: start: 2015
  52. HYDROXYZINE [Concomitant]
     Active Substance: HYDROXYZINE HYDROCHLORIDE
  53. LEVOTHYROXINE. [Concomitant]
     Active Substance: LEVOTHYROXINE
  54. PROCHLORPERAZINE. [Concomitant]
     Active Substance: PROCHLORPERAZINE
  55. PROMETHEGAN [Concomitant]
     Active Substance: PROMETHAZINE HYDROCHLORIDE
  56. VENTOLIN [Concomitant]
     Active Substance: ALBUTEROL SULFATE
  57. UNISOM SLEEPGELS NIGHTTIME SLEEP-AID [Concomitant]
     Active Substance: DIPHENHYDRAMINE HYDROCHLORIDE
  58. AMOX                               /00249601/ [Concomitant]
     Indication: INFECTION
     Dosage: UNK
     Dates: start: 2014
  59. CLARITHROMYCIN. [Concomitant]
     Active Substance: CLARITHROMYCIN
     Indication: INFECTION
     Dosage: UNK
     Dates: start: 2013
  60. HYDROCODONE [Concomitant]
     Active Substance: HYDROCODONE
  61. OFLOXACIN. [Concomitant]
     Active Substance: OFLOXACIN
  62. OXYCODONE [Concomitant]
     Active Substance: OXYCODONE
  63. PIOGLITAZONE. [Concomitant]
     Active Substance: PIOGLITAZONE
  64. SPIRIVA [Concomitant]
     Active Substance: TIOTROPIUM BROMIDE MONOHYDRATE
  65. TOPAMAX [Concomitant]
     Active Substance: TOPIRAMATE
  66. VOLTAREN [Concomitant]
     Active Substance: DICLOFENAC SODIUM
  67. EXCEDRIN [Concomitant]
     Active Substance: ACETAMINOPHEN\ASPIRIN\CAFFEINE
  68. ROLAIDS                            /00069401/ [Concomitant]
     Active Substance: DIHYDROXYALUMINUM SODIUM CARBONATE

REACTIONS (1)
  - Chronic kidney disease [Not Recovered/Not Resolved]

NARRATIVE: CASE EVENT DATE: 20110608
